FAERS Safety Report 5887079-5 (Version None)
Quarter: 2008Q3

REPORT INFORMATION
  Report Type: 
  Country: None (occurrence: None)
  Receive Date: 20080917
  Receipt Date: 20080905
  Transmission Date: 20090109
  Serious: Yes (Congenital Anomaly, Other)
  Sender: FDA-Public Use
  Company Number: US-PFIZER INC-2007095295

PATIENT
  Sex: Female

DRUGS (1)
  1. ZOLOFT [Suspect]
     Indication: ANXIETY
     Dates: start: 20041201

REACTIONS (10)
  - ATRIAL SEPTAL DEFECT [None]
  - BLOOD UREA INCREASED [None]
  - CARDIAC FAILURE CONGESTIVE [None]
  - CARDIAC MURMUR [None]
  - DRUG EXPOSURE DURING PREGNANCY [None]
  - GASTROOESOPHAGEAL REFLUX DISEASE [None]
  - RED BLOOD CELL COUNT INCREASED [None]
  - VENTRICULAR SEPTAL DEFECT [None]
  - VOMITING [None]
  - WEIGHT GAIN POOR [None]
